FAERS Safety Report 8594820-X (Version None)
Quarter: 2012Q3

REPORT INFORMATION
  Report Type: 
  Country: None (occurrence: None)
  Receive Date: 20120815
  Receipt Date: 20120801
  Transmission Date: 20120928
  Serious: Yes (Hospitalization, Other)
  Sender: FDA-Public Use
  Company Number: US-BAYER-2012-079629

PATIENT
  Age: 25 Year
  Sex: Female
  Weight: 61.2 kg

DRUGS (9)
  1. YAZ [Suspect]
     Dosage: UNK
     Dates: start: 20080617, end: 20090513
  2. DIAZEPAM [Concomitant]
     Dosage: 5 MG,TK 1 T Q 6 H PRN (INTERPRETED AS EVERY 6 HOURS AS NEEDED)
     Route: 048
     Dates: start: 20080719
  3. PENICILLIN VK [Concomitant]
     Dosage: 500 MG, TK 2 TS TO START, THEN TK 1 T QID (INTERPRETED AS 4 TIMES A DAY) FOR 7 DAYS
     Route: 048
     Dates: start: 20080620
  4. DIAZEPAM [Concomitant]
     Dosage: 5 MG, TK 1 T Q 6 H PRN (INTERPRETED AS EVERY 6 HOURS AS NEEDED)
     Route: 048
     Dates: start: 20080710
  5. IBUPROFEN [Concomitant]
     Dosage: 600 MG,Q8H PRN (INTERPRETED AS EVERY 8 HOURS AS NEEDED)
     Route: 048
     Dates: start: 20100715
  6. TERCONAZOLE [Concomitant]
     Dosage: 20 UNK, INSERT VAGINALLY AT BEDTIME FOR 3 CONSECUTIVE DAYS
     Route: 067
     Dates: start: 20080625
  7. ADVIL [Concomitant]
     Dosage: 400 MG, PRN
     Route: 048
     Dates: start: 20100715
  8. HYDROCODONE BITARTRATE + ACETAMINOPHEN [Concomitant]
     Dosage: 10MG/325MG, 1 TO 2  TABLETS EVERY 4 HOURS PRN
     Route: 048
     Dates: start: 20080617, end: 20080723
  9. MIRCETTE [Concomitant]
     Dosage: UNK
     Route: 048

REACTIONS (4)
  - PULMONARY EMBOLISM [None]
  - DEEP VEIN THROMBOSIS [None]
  - INJURY [None]
  - PAIN [None]
